FAERS Safety Report 4294383-3 (Version None)
Quarter: 2004Q1

REPORT INFORMATION
  Report Type: 
  Country: None (occurrence: None)
  Receive Date: 20040211
  Receipt Date: 20040130
  Transmission Date: 20041129
  Serious: Yes (Hospitalization, Other)
  Sender: FDA-Public Use
  Company Number: WAES 0402USA00507

PATIENT
  Age: 74 Year
  Sex: Male

DRUGS (10)
  1. ALLOPURINOL [Suspect]
     Indication: HYPERURICAEMIA
     Route: 048
     Dates: start: 20031126, end: 20031212
  2. LIPITOR [Suspect]
     Indication: HYPERCHOLESTEROLAEMIA
     Route: 048
     Dates: start: 20031108, end: 20031222
  3. HERBESSER [Suspect]
     Indication: HYPERTENSION
     Route: 048
     Dates: start: 20031108, end: 20031222
  4. CARDENALIN [Suspect]
     Indication: HYPERTENSION
     Route: 048
     Dates: start: 20031108, end: 20031222
  5. EPOGIN [Suspect]
     Indication: NEPHROGENIC ANAEMIA
     Route: 058
     Dates: start: 20031117
  6. PEPCID RPD [Suspect]
     Route: 048
     Dates: start: 20031111
  7. LASIX [Suspect]
     Indication: RENAL FAILURE
     Route: 048
     Dates: start: 20031113, end: 20031222
  8. GLIMICRON [Suspect]
     Indication: DIABETES MELLITUS
     Route: 048
     Dates: start: 20031130, end: 20031222
  9. ADALAT [Suspect]
     Indication: HYPERTENSION
     Route: 048
     Dates: start: 20031108, end: 20031222
  10. ADAPTINOL [Suspect]
     Indication: RETINAL DEPIGMENTATION
     Route: 048
     Dates: start: 20031113, end: 20031222

REACTIONS (5)
  - DRUG HYPERSENSITIVITY [None]
  - LEUKOCYTOSIS [None]
  - LIVER DISORDER [None]
  - RASH ERYTHEMATOUS [None]
  - RENAL FAILURE [None]
